FAERS Safety Report 23638834 (Version 1)
Quarter: 2024Q1

REPORT INFORMATION
  Report Type: Spontaneous
  Country: US (occurrence: None)
  Receive Date: 20240315
  Receipt Date: 20240315
  Transmission Date: 20240409
  Serious: Yes (Hospitalization, Other)
  Sender: FDA-Public Use
  Company Number: 2024A058674

PATIENT
  Age: 68 Year

DRUGS (1)
  1. BYETTA [Suspect]
     Active Substance: EXENATIDE
     Dosage: 2.4ML UNKNOWN

REACTIONS (11)
  - Feeling abnormal [Unknown]
  - Wrong dose [Unknown]
  - Illness [Unknown]
  - Blood glucose decreased [Unknown]
  - Vomiting [Unknown]
  - Fear [Unknown]
  - Tremor [Unknown]
  - Sleep disorder due to general medical condition, insomnia type [Unknown]
  - Product dose omission issue [Unknown]
  - Device malfunction [Unknown]
  - Product distribution issue [Unknown]

NARRATIVE: CASE EVENT DATE: 20240307
